FAERS Safety Report 7149447-3 (Version None)
Quarter: 2010Q4

REPORT INFORMATION
  Report Type: 
  Country: None (occurrence: None)
  Receive Date: 20101209
  Receipt Date: 20101207
  Transmission Date: 20110411
  Serious: No
  Sender: FDA-Public Use
  Company Number: US-PFIZER INC-2010166487

PATIENT
  Sex: Female
  Weight: 63.492 kg

DRUGS (3)
  1. TYGACIL [Suspect]
     Indication: SOFT TISSUE INFECTION
     Dosage: 100 MG, 1X/DAY
     Dates: start: 20101101, end: 20101204
  2. TYGACIL [Suspect]
     Dosage: 100 MG, 1X/DAY
     Dates: start: 20101207, end: 20101207
  3. LISINOPRIL [Concomitant]
     Dosage: 500 MG, 2X/DAY
     Route: 048

REACTIONS (4)
  - BACK PAIN [None]
  - CHILLS [None]
  - NAUSEA [None]
  - NECK PAIN [None]
